FAERS Safety Report 6814424-6 (Version None)
Quarter: 2010Q3

REPORT INFORMATION
  Report Type: 
  Country: None (occurrence: None)
  Receive Date: 20100702
  Receipt Date: 20100618
  Transmission Date: 20110219
  Serious: Yes (Other)
  Sender: FDA-Public Use
  Company Number: PHHY2010US22403

PATIENT
  Sex: Female

DRUGS (1)
  1. FEMARA [Suspect]
     Dosage: 2.5 MG, QD
     Route: 048
     Dates: start: 20010101

REACTIONS (6)
  - COUGH [None]
  - DYSPNOEA [None]
  - METASTASES TO LUNG [None]
  - PNEUMONIA [None]
  - PNEUMONITIS [None]
  - UPPER RESPIRATORY TRACT INFECTION [None]
